FAERS Safety Report 26058580 (Version 1)
Quarter: 2025Q4

REPORT INFORMATION
  Report Type: Report from Study
  Country: US (occurrence: US)
  Receive Date: 20251118
  Receipt Date: 20251118
  Transmission Date: 20260118
  Serious: Yes (Other)
  Sender: GE HEALTHCARE
  Company Number: US-GE HEALTHCARE-2025CSU015646

PATIENT
  Sex: Female
  Weight: 52 kg

DRUGS (1)
  1. CERIANNA [Suspect]
     Active Substance: FLUOROESTRADIOL F-18
     Indication: Positron emission tomogram
     Dosage: UNK, TOTAL
     Route: 042
     Dates: start: 20250611

REACTIONS (7)
  - Gait disturbance [Not Recovered/Not Resolved]
  - Metastases to meninges [Not Recovered/Not Resolved]
  - Seizure [Not Recovered/Not Resolved]
  - Lethargy [Not Recovered/Not Resolved]
  - Seizure [Not Recovered/Not Resolved]
  - Lethargy [Not Recovered/Not Resolved]
  - Mental status changes [Not Recovered/Not Resolved]

NARRATIVE: CASE EVENT DATE: 20250908
